FAERS Safety Report 10585070 (Version 1)
Quarter: 2014Q4

REPORT INFORMATION
  Report Type: Report from Study
  Country: DE (occurrence: CN)
  Receive Date: 20141114
  Receipt Date: 20141114
  Transmission Date: 20150529
  Serious: Yes (Death)
  Sender: FDA-Public Use
  Company Number: DE-ACTELION-A-US2010-107590

PATIENT
  Age: 71 Year
  Sex: Female

DRUGS (5)
  1. VENTAVIS [Suspect]
     Active Substance: ILOPROST
     Dosage: 6-9 TIMES A DAY (INHALATION DURATION: MORE THAN 10 MINUTES)
     Route: 055
  2. WARFARIN [Suspect]
     Active Substance: WARFARIN
     Indication: PRODUCT USED FOR UNKNOWN INDICATION
     Route: 065
  3. SILDENAFIL. [Concomitant]
     Active Substance: SILDENAFIL
  4. OXYGEN. [Concomitant]
     Active Substance: OXYGEN
  5. VENTAVIS [Suspect]
     Active Substance: ILOPROST
     Indication: PULMONARY ARTERIAL HYPERTENSION
     Route: 055

REACTIONS (5)
  - Cerebral haemorrhage [Fatal]
  - Epistaxis [Unknown]
  - Labelled drug-drug interaction medication error [Unknown]
  - Unevaluable event [Unknown]
  - Fall [Unknown]
